FAERS Safety Report 6379006-1 (Version None)
Quarter: 2009Q3

REPORT INFORMATION
  Report Type: 
  Country: None (occurrence: None)
  Receive Date: 20090923
  Receipt Date: 20090915
  Transmission Date: 20100115
  Serious: Yes (Other)
  Sender: FDA-Public Use
  Company Number: 2009010416

PATIENT
  Sex: Female

DRUGS (3)
  1. NUVIGIL [Suspect]
     Dosage: 150 MG (150 MG, 1 IN 1 D), ORAL, 300 MG (300 MG, 1 IN 1 D), ORAL, 250 MG (250 MG, 1 IN 1 D), ORAL
     Route: 048
     Dates: start: 20090101, end: 20090101
  2. NUVIGIL [Suspect]
     Dosage: 150 MG (150 MG, 1 IN 1 D), ORAL, 300 MG (300 MG, 1 IN 1 D), ORAL, 250 MG (250 MG, 1 IN 1 D), ORAL
     Route: 048
     Dates: start: 20090101, end: 20090901
  3. NUVIGIL [Suspect]
     Dosage: 150 MG (150 MG, 1 IN 1 D), ORAL, 300 MG (300 MG, 1 IN 1 D), ORAL, 250 MG (250 MG, 1 IN 1 D), ORAL
     Route: 048
     Dates: start: 20090101, end: 20090901

REACTIONS (1)
  - STEVENS-JOHNSON SYNDROME [None]
